FAERS Safety Report 11155632 (Version 2)
Quarter: 2015Q3

REPORT INFORMATION
  Report Type: Spontaneous
  Country: US (occurrence: US)
  Receive Date: 20150602
  Receipt Date: 20150826
  Transmission Date: 20151125
  Serious: Yes (Death, Other)
  Sender: FDA-Public Use
  Company Number: US-PFIZER INC-2015184655

PATIENT
  Age: 58 Year
  Sex: Male

DRUGS (4)
  1. DEPO-TESTOSTERONE [Suspect]
     Active Substance: TESTOSTERONE CYPIONATE
     Indication: HORMONE REPLACEMENT THERAPY
     Dosage: UNK, (EVERY 2 WEEKS)
     Dates: start: 201302, end: 201307
  2. DEPO-TESTOSTERONE [Suspect]
     Active Substance: TESTOSTERONE CYPIONATE
     Indication: ERECTILE DYSFUNCTION
  3. ANDROGEL [Suspect]
     Active Substance: TESTOSTERONE
     Indication: HORMONE REPLACEMENT THERAPY
     Dosage: UNK, DAILY
     Dates: start: 201112, end: 201302
  4. ANDROGEL [Suspect]
     Active Substance: TESTOSTERONE
     Indication: ERECTILE DYSFUNCTION

REACTIONS (1)
  - Acute myocardial infarction [Fatal]

NARRATIVE: CASE EVENT DATE: 20130701
